FAERS Safety Report 18165910 (Version 1)
Quarter: 2020Q3

REPORT INFORMATION
  Report Type: Spontaneous
  Country: US (occurrence: US)
  Receive Date: 20200818
  Receipt Date: 20200818
  Transmission Date: 20201103
  Serious: No
  Sender: FDA-Public Use
  Company Number: US-TEVA-2020-US-1814613

PATIENT
  Age: 8 Decade
  Sex: Female

DRUGS (5)
  1. MYCOLOG [Concomitant]
     Active Substance: GRAMICIDIN\NEOMYCIN SULFATE\NYSTATIN\TRIAMCINOLONE ACETONIDE
     Indication: MICTURITION URGENCY
  2. PROMETHAZINE HYDROCHLORIDE TEVA [Suspect]
     Active Substance: PROMETHAZINE HYDROCHLORIDE
     Dosage: 25 MG
     Route: 048
  3. ESTROGEN [Concomitant]
     Active Substance: ESTROGENS
     Indication: VULVOVAGINAL PRURITUS
  4. ESTROGEN [Concomitant]
     Active Substance: ESTROGENS
     Indication: VULVOVAGINAL BURNING SENSATION
  5. ALPRAZOLAM. [Suspect]
     Active Substance: ALPRAZOLAM
     Route: 048

REACTIONS (1)
  - Abdominal pain [Not Recovered/Not Resolved]
